FAERS Safety Report 7971631-7 (Version None)
Quarter: 2011Q4

REPORT INFORMATION
  Report Type: 
  Country: None (occurrence: None)
  Receive Date: 20111212
  Receipt Date: 20111201
  Transmission Date: 20120403
  Serious: Yes (Hospitalization)
  Sender: FDA-Public Use
  Company Number: US-JNJFOC-20111201775

PATIENT
  Sex: Male
  Weight: 36.5 kg

DRUGS (10)
  1. REMICADE [Suspect]
     Indication: CROHN'S DISEASE
     Route: 042
     Dates: start: 20100108
  2. CHOLECALCIFEROL [Concomitant]
  3. FLUOCINOLONE ACETONIDE [Concomitant]
  4. TERBINAFINE HCL [Concomitant]
  5. KETOCONAZOLE [Concomitant]
  6. PROBIOTICS [Concomitant]
  7. KETOCONAZOLE [Concomitant]
  8. FERROUS SULFATE TAB [Concomitant]
  9. LORATADINE [Concomitant]
  10. MULTI-VITAMINS [Concomitant]

REACTIONS (1)
  - VIRAL INFECTION [None]
